FAERS Safety Report 10652132 (Version 1)
Quarter: 2014Q4

REPORT INFORMATION
  Report Type: Spontaneous
  Country: US (occurrence: None)
  Receive Date: 20141205
  Receipt Date: 20141205
  Transmission Date: 20150529
  Serious: No
  Sender: FDA-Public Use
  Company Number: 2014TUS007131

PATIENT
  Age: 88 Year
  Sex: Female
  Weight: 72.6 kg

DRUGS (4)
  1. UNKNOWN INSULIN (INSULIN) [Concomitant]
  2. NESINA [Suspect]
     Active Substance: ALOGLIPTIN BENZOATE
     Indication: TYPE 2 DIABETES MELLITUS
     Route: 048
     Dates: start: 201404
  3. UNK MEDICATION (LIPID MODIFYING AGENTS) [Concomitant]
  4. UNK MEDICATION (ANTIHYPERTENSIVES) [Concomitant]

REACTIONS (3)
  - Hair growth abnormal [None]
  - Alopecia [None]
  - Drug ineffective [None]
